FAERS Safety Report 5153881-0 (Version None)
Quarter: 2006Q4

REPORT INFORMATION
  Report Type: 
  Country: None (occurrence: None)
  Receive Date: 20061120
  Receipt Date: 20061109
  Transmission Date: 20070319
  Serious: Yes (Hospitalization)
  Sender: FDA-Public Use
  Company Number: US-JNJFOC-20051103228

PATIENT
  Sex: Female
  Weight: 49.9 kg

DRUGS (8)
  1. RISPERDAL [Suspect]
  2. RISPERDAL [Suspect]
  3. RISPERDAL [Suspect]
  4. RISPERDAL [Suspect]
     Dosage: AT BEDTIME
  5. RISPERDAL [Suspect]
     Indication: DRUG USE FOR UNKNOWN INDICATION
     Dosage: AT BEDTIME
  6. ESCITALOPRAM OXALATE [Concomitant]
  7. AMBIEN [Concomitant]
  8. GLUCOPHAGE XR [Concomitant]

REACTIONS (6)
  - ABSCESS [None]
  - DIABETES MELLITUS INSULIN-DEPENDENT [None]
  - DIABETIC KETOACIDOSIS [None]
  - DRUG SCREEN POSITIVE [None]
  - NEPHROLITHIASIS [None]
  - TREATMENT NONCOMPLIANCE [None]
